FAERS Safety Report 7527332-2 (Version None)
Quarter: 2011Q2

REPORT INFORMATION
  Report Type: 
  Country: None (occurrence: None)
  Receive Date: 20110607
  Receipt Date: 20090316
  Transmission Date: 20111010
  Serious: Yes (Other)
  Sender: FDA-Public Use
  Company Number: US-BAYER-200915582NA

PATIENT
  Age: 61 Year
  Sex: Male
  Weight: 81.633 kg

DRUGS (25)
  1. ZINACEF [Concomitant]
     Dosage: 1.5 G, UNK
     Route: 042
     Dates: start: 20030408, end: 20030408
  2. HEPARIN [Concomitant]
     Dosage: 15000 U, UNK
     Route: 042
     Dates: start: 20030408, end: 20030408
  3. PROTAMINE SULFATE [Concomitant]
     Dosage: 300 MG, UNK
     Route: 042
     Dates: start: 20030408, end: 20030408
  4. FENTANYL [Concomitant]
     Dosage: 10 CC
     Route: 042
     Dates: start: 20030408, end: 20030408
  5. LIPITOR [Concomitant]
     Indication: CHOLESTEROSIS
  6. METOPROLOL TARTRATE [Concomitant]
     Indication: HYPERTENSION
  7. INTEGRILIN [Concomitant]
  8. ANGIOMAX [Concomitant]
  9. VERSED [Concomitant]
     Dosage: 10 MG, UNK
     Route: 042
     Dates: start: 20030408, end: 20030408
  10. NEXIUM [Concomitant]
     Indication: GASTROOESOPHAGEAL REFLUX DISEASE
  11. LISINOPRIL [Concomitant]
     Indication: HYPERTENSION
  12. PLATELETS [Concomitant]
     Dosage: 4 U, UNK
     Route: 042
     Dates: start: 20030408, end: 20030408
  13. CRYOPRECIPITATES [Concomitant]
     Dosage: 20 U, UNK
     Route: 042
     Dates: start: 20030408, end: 20030408
  14. TRASYLOL [Suspect]
     Dosage: 25 ML PER HR INFUSION
     Route: 042
     Dates: start: 20030408, end: 20030408
  15. SEVOFLURANE [Concomitant]
     Dosage: 0.5-1.2 INHALATION
     Dates: start: 20030408, end: 20030408
  16. LASIX [Concomitant]
     Indication: BLOOD PRESSURE ABNORMAL
  17. LEVOPHED [Concomitant]
     Dosage: UNK
     Route: 042
     Dates: start: 20030408, end: 20030408
  18. NITROGLYCERIN [Concomitant]
     Dosage: UNK
     Route: 042
     Dates: start: 20030408, end: 20030408
  19. PLASMA [Concomitant]
     Dosage: 4 U, UNK
     Route: 042
     Dates: start: 20030408, end: 20030408
  20. BENADRYL [Concomitant]
     Dosage: 50 MG, UNK
     Route: 042
     Dates: start: 20030408, end: 20030408
  21. TRASYLOL [Suspect]
     Indication: CORONARY ARTERY BYPASS
     Dosage: 50 CC BOLUS LOADING DOSE
     Route: 042
     Dates: start: 20030408, end: 20030408
  22. ACETYLSALICYLIC ACID SRT [Concomitant]
  23. MAGNESIUM SULFATE [Concomitant]
     Dosage: UNK
     Route: 042
     Dates: start: 20030408, end: 20030408
  24. SOLU-MEDROL [Concomitant]
     Dosage: 125 MG, UNK
     Route: 042
     Dates: start: 20030408, end: 20030408
  25. RED BLOOD CELLS [Concomitant]
     Dosage: 4 U, UNK
     Route: 042
     Dates: start: 20030408, end: 20030408

REACTIONS (10)
  - UNEVALUABLE EVENT [None]
  - CEREBROVASCULAR ACCIDENT [None]
  - ANXIETY [None]
  - ANHEDONIA [None]
  - ADVERSE EVENT [None]
  - DEPRESSION [None]
  - INJURY [None]
  - FEAR [None]
  - RENAL FAILURE [None]
  - PAIN [None]
